FAERS Safety Report 9039678 (Version 1)
Quarter: 2013Q1

REPORT INFORMATION
  Report Type: Report from Study
  Country: US (occurrence: US)
  Receive Date: 20130129
  Receipt Date: 20130129
  Transmission Date: 20140127
  Serious: No
  Sender: FDA-Public Use
  Company Number: US-ABBOTT-12P-163-0944671-00

PATIENT
  Sex: Female
  Weight: 53.57 kg

DRUGS (8)
  1. HUMIRA 40 MG/0.8 ML PEN [Suspect]
     Indication: RHEUMATOID ARTHRITIS
     Dates: start: 20120604
  2. AGGRENOX [Concomitant]
     Indication: THROMBOSIS PROPHYLAXIS
  3. SYNTHROID [Concomitant]
     Indication: THYROID DISORDER
  4. CRESTOR [Concomitant]
     Indication: BLOOD CHOLESTEROL INCREASED
  5. PROTONIX [Concomitant]
     Indication: GASTROOESOPHAGEAL REFLUX DISEASE
  6. TRIAMTERENE [Concomitant]
     Indication: FLUID RETENTION
  7. CLARITIN [Concomitant]
     Indication: HYPERSENSITIVITY
  8. PAXIL [Concomitant]
     Indication: ANXIETY

REACTIONS (1)
  - Fatigue [Recovered/Resolved]
